FAERS Safety Report 25053037 (Version 3)
Quarter: 2025Q2

REPORT INFORMATION
  Report Type: Spontaneous
  Country: US (occurrence: US)
  Receive Date: 20250307
  Receipt Date: 20250624
  Transmission Date: 20250717
  Serious: No
  Sender: SANOFI AVENTIS
  Company Number: US-SA-2025SA061862

PATIENT
  Age: 60 Year
  Sex: Female

DRUGS (1)
  1. DUPIXENT [Suspect]
     Active Substance: DUPILUMAB
     Indication: Eczema
     Dosage: 300 MG, QOW
     Route: 058
     Dates: start: 20241112, end: 20250511

REACTIONS (17)
  - Peripheral swelling [Unknown]
  - Skin fissures [Unknown]
  - Haemorrhage [Unknown]
  - Gait inability [Unknown]
  - Skin irritation [Unknown]
  - Sleep disorder due to a general medical condition [Unknown]
  - Eczema [Unknown]
  - Erythema [Recovering/Resolving]
  - Swelling [Unknown]
  - Product dose omission in error [Unknown]
  - Pruritus [Unknown]
  - Eye swelling [Unknown]
  - Periorbital swelling [Unknown]
  - Swelling face [Unknown]
  - Ocular hyperaemia [Unknown]
  - Rash [Unknown]
  - Injection site pain [Unknown]

NARRATIVE: CASE EVENT DATE: 20250401
